FAERS Safety Report 7517507-0 (Version None)
Quarter: 2011Q2

REPORT INFORMATION
  Report Type: 
  Country: None (occurrence: None)
  Receive Date: 20110601
  Receipt Date: 20110518
  Transmission Date: 20111010
  Serious: Yes (Hospitalization, Other)
  Sender: FDA-Public Use
  Company Number: PHHY2011JP42976

PATIENT
  Age: 12 Year
  Sex: Female

DRUGS (6)
  1. METHYLPREDNISOLONE [Concomitant]
     Indication: GLOMERULONEPHRITIS MINIMAL LESION
  2. CYCLOSPORINE [Suspect]
     Indication: GLOMERULONEPHRITIS MINIMAL LESION
  3. CYCLOPHOSPHAMIDE [Concomitant]
     Indication: GLOMERULONEPHRITIS MINIMAL LESION
  4. PREDNISOLONE [Concomitant]
     Indication: GLOMERULONEPHRITIS MINIMAL LESION
  5. MIZORIBINE [Concomitant]
     Route: 048
  6. MYCOPHENOLATE MEFETIL [Concomitant]
     Indication: GLOMERULONEPHRITIS MINIMAL LESION
     Route: 048

REACTIONS (6)
  - SPINAL COMPRESSION FRACTURE [None]
  - HEADACHE [None]
  - NAUSEA [None]
  - STEROID WITHDRAWAL SYNDROME [None]
  - OSTEOPOROSIS [None]
  - VOMITING [None]
